FAERS Safety Report 4631565-2 (Version None)
Quarter: 2005Q2

REPORT INFORMATION
  Report Type: 
  Country: None (occurrence: None)
  Receive Date: 20050407
  Receipt Date: 20050325
  Transmission Date: 20051028
  Serious: Yes (Hospitalization)
  Sender: FDA-Public Use
  Company Number: 2005051632

PATIENT
  Age: 48 Year
  Sex: Male

DRUGS (4)
  1. EPIRUBICIN [Suspect]
     Indication: SMALL CELL LUNG CANCER STAGE UNSPECIFIED
     Dosage: (2 CYCLE)
     Dates: start: 20050105, end: 20050207
  2. ETOPOSIDE [Suspect]
     Indication: SMALL CELL LUNG CANCER STAGE UNSPECIFIED
     Dosage: (2 CYCLE)
     Dates: start: 20050105, end: 20050207
  3. CISPLATIN [Suspect]
     Indication: SMALL CELL LUNG CANCER STAGE UNSPECIFIED
     Dosage: (2 CYCLE)
     Dates: start: 20050105, end: 20050207
  4. CYCLOPHOSPHAMIDE [Suspect]
     Indication: SMALL CELL LUNG CANCER STAGE UNSPECIFIED
     Dosage: (2 CYCLE)
     Dates: start: 20050105, end: 20050207

REACTIONS (2)
  - LUNG DISORDER [None]
  - PULMONARY HYPERTENSION [None]
